FAERS Safety Report 4753950-0 (Version None)
Quarter: 2005Q3

REPORT INFORMATION
  Report Type: 
  Country: None (occurrence: None)
  Receive Date: 20050826
  Receipt Date: 20050718
  Transmission Date: 20060218
  Serious: Yes (Death, Life-Threatening, Hospitalization, Other)
  Sender: FDA-Public Use
  Company Number: BE-ABBOTT-05P-013-0306102-00

PATIENT
  Sex: Female

DRUGS (2)
  1. ZEMPLAR [Suspect]
     Indication: DRUG USE FOR UNKNOWN INDICATION
     Dosage: NOT REPORTED
     Route: 042
  2. ZEMPLAR [Suspect]
     Dosage: NOT REPORTED
     Route: 042
     Dates: end: 20050818

REACTIONS (3)
  - CARDIAC ARREST [None]
  - MALAISE [None]
  - RESPIRATORY ARREST [None]
